FAERS Safety Report 10177044 (Version 1)
Quarter: 2014Q2

REPORT INFORMATION
  Report Type: Spontaneous
  Country: DE (occurrence: DE)
  Receive Date: 20140516
  Receipt Date: 20140516
  Transmission Date: 20141212
  Serious: Yes (Congenital Anomaly, Other)
  Sender: FDA-Public Use
  Company Number: GXKR2014DE001894

PATIENT
  Sex: 0

DRUGS (6)
  1. VENLAFAXINE [Suspect]
     Indication: DEPRESSION
     Dosage: 225 MG, UNK
     Route: 064
     Dates: start: 20121220, end: 20130917
  2. ELONTRIL [Suspect]
     Indication: DEPRESSION
     Dosage: 300 MG, UNK
     Route: 064
     Dates: start: 20121220, end: 20130917
  3. PRILOCAINE [Suspect]
     Indication: PUDENDAL BLOCK
     Route: 064
     Dates: start: 20130917, end: 20130917
  4. L-THYROXIN [Concomitant]
     Indication: HYPOTHYROIDISM
     Dosage: 75 UG, UNK
     Route: 064
     Dates: start: 20121220, end: 20130917
  5. VOMEX A [Concomitant]
     Indication: GASTROENTERITIS
     Route: 064
  6. RHOPHYLAC [Concomitant]
     Indication: PROPHYLAXIS AGAINST RH ISOIMMUNISATION
     Route: 064
     Dates: start: 20130704, end: 20130704

REACTIONS (8)
  - Convulsion [Recovered/Resolved]
  - Feeding disorder neonatal [Recovered/Resolved]
  - Neonatal respiratory distress syndrome [Recovered/Resolved]
  - Drug withdrawal syndrome neonatal [Recovered/Resolved]
  - Persistent foetal circulation [Recovered/Resolved]
  - Patent ductus arteriosus [Recovering/Resolving]
  - Atrial septal defect [Recovering/Resolving]
  - Neonatal asphyxia [Recovered/Resolved]
